FAERS Safety Report 8760962 (Version 8)
Quarter: 2016Q2

REPORT INFORMATION
  Report Type: Spontaneous
  Country: US (occurrence: US)
  Receive Date: 20120830
  Receipt Date: 20160523
  Transmission Date: 20160815
  Serious: Yes (Other)
  Sender: FDA-Public Use
  Company Number: US-009507513-1208USA011035

PATIENT
  Sex: Male
  Weight: 77.98 kg

DRUGS (1)
  1. PROPECIA [Suspect]
     Active Substance: FINASTERIDE
     Indication: ALOPECIA
     Dosage: 1 MG, UNK
     Route: 048
     Dates: start: 200304, end: 200505

REACTIONS (66)
  - Nervous system disorder [Unknown]
  - Ligament sprain [Unknown]
  - Somatic symptom disorder [Unknown]
  - Blood oestrogen increased [Unknown]
  - Semen volume decreased [Unknown]
  - Pain in extremity [Unknown]
  - Proctalgia [Not Recovered/Not Resolved]
  - Pelvic pain [Unknown]
  - Poor quality sleep [Not Recovered/Not Resolved]
  - Hypogonadism [Not Recovered/Not Resolved]
  - Hypopituitarism [Unknown]
  - Erectile dysfunction [Unknown]
  - Fatigue [Unknown]
  - Haemorrhoids [Unknown]
  - Painful ejaculation [Unknown]
  - Penis disorder [Unknown]
  - Sleep apnoea syndrome [Recovered/Resolved]
  - Loss of libido [Not Recovered/Not Resolved]
  - Spinal pain [Unknown]
  - Muscle spasms [Unknown]
  - Pain in extremity [Unknown]
  - Umbilical hernia [Unknown]
  - Blood calcium increased [Recovered/Resolved]
  - Anogenital warts [Unknown]
  - Radiculopathy [Unknown]
  - Prostatitis [Unknown]
  - Hypoaesthesia [Unknown]
  - Joint surgery [Unknown]
  - Drug ineffective [Unknown]
  - Mental impairment [Unknown]
  - Hyperacusis [Unknown]
  - Umbilical hernia repair [Unknown]
  - Anxiety [Unknown]
  - Vertigo [Unknown]
  - Attention deficit/hyperactivity disorder [Recovering/Resolving]
  - Familial tremor [Not Recovered/Not Resolved]
  - Restless legs syndrome [Not Recovered/Not Resolved]
  - Hand fracture [Unknown]
  - Transferrin saturation decreased [Unknown]
  - Chlamydial infection [Recovered/Resolved]
  - Pain [Unknown]
  - Burning sensation [Not Recovered/Not Resolved]
  - Weight decreased [Unknown]
  - Blood albumin increased [Unknown]
  - Sensory loss [Unknown]
  - Asthenia [Unknown]
  - Limb operation [Unknown]
  - Musculoskeletal chest pain [Unknown]
  - Fibromyalgia [Unknown]
  - Dermatitis contact [Unknown]
  - Paraesthesia [Unknown]
  - Disturbance in attention [Not Recovered/Not Resolved]
  - Confusional state [Not Recovered/Not Resolved]
  - Bronchitis [Unknown]
  - Fractured coccyx [Unknown]
  - Pain [Unknown]
  - Initial insomnia [Not Recovered/Not Resolved]
  - Sexual dysfunction [Unknown]
  - Photophobia [Unknown]
  - Dysarthria [Unknown]
  - Stress [Unknown]
  - Hot flush [Unknown]
  - Wisdom teeth removal [Unknown]
  - Nausea [Unknown]
  - Hypoaesthesia [Not Recovered/Not Resolved]
  - Depression [Unknown]

NARRATIVE: CASE EVENT DATE: 2004
